FAERS Safety Report 4530646-1 (Version None)
Quarter: 2004Q4

REPORT INFORMATION
  Report Type: 
  Country: None (occurrence: None)
  Receive Date: 20041216
  Receipt Date: 20041209
  Transmission Date: 20050328
  Serious: Yes (Hospitalization)
  Sender: FDA-Public Use
  Company Number: K200401871

PATIENT
  Age: 72 Year
  Sex: Female

DRUGS (4)
  1. SEPTRA [Suspect]
     Dosage: ORAL
     Route: 048
  2. FORTAZ [Suspect]
     Dosage: INTRAVENOUS
     Route: 042
  3. ADENOSINE TRIPHOSPHATE(ADENOSINE TRIPHOSPHATE) [Suspect]
     Dosage: TIW
     Dates: start: 20041119, end: 20041129
  4. TOBRAMYCIN SULFATE [Suspect]

REACTIONS (1)
  - COMA [None]
